FAERS Safety Report 5259323-9 (Version None)
Quarter: 2007Q1

REPORT INFORMATION
  Report Type: 
  Country: None (occurrence: None)
  Receive Date: 20070305
  Receipt Date: 20070125
  Transmission Date: 20070707
  Serious: Yes (Disabling)
  Sender: FDA-Public Use
  Company Number: OSCN-NO-0608S-0235

PATIENT
  Age: 42 Year
  Sex: Male

DRUGS (7)
  1. OMNISCAN [Suspect]
     Indication: RENAL ARTERY STENOSIS
     Dosage: 20 ML, SINGLE DOSE, I.V., 30 ML, SINGLE DOSE, I.V.
     Route: 042
     Dates: start: 20040312, end: 20040312
  2. OMNISCAN [Suspect]
     Indication: RENAL ARTERY STENOSIS
     Dosage: 20 ML, SINGLE DOSE, I.V., 30 ML, SINGLE DOSE, I.V.
     Route: 042
     Dates: start: 20040402, end: 20040402
  3. CALCIUM CARBONATE (CALCICHEW) [Concomitant]
  4. FRUSEMIDE [Concomitant]
  5. MYCOPHENOLATE MOFETIL [Concomitant]
  6. EPOGEN [Concomitant]
  7. PREDNISOLONE [Concomitant]

REACTIONS (3)
  - COMPLICATIONS OF TRANSPLANTED KIDNEY [None]
  - KIDNEY TRANSPLANT REJECTION [None]
  - NEPHROGENIC FIBROSING DERMOPATHY [None]
